FAERS Safety Report 11195385 (Version 5)
Quarter: 2017Q4

REPORT INFORMATION
  Report Type: Report from Study
  Country: CA (occurrence: CA)
  Receive Date: 20150617
  Receipt Date: 20171229
  Transmission Date: 20180320
  Serious: Yes (Hospitalization, Other)
  Sender: FDA-Public Use
  Company Number: CA-ROCHE-1426438

PATIENT
  Sex: Male

DRUGS (10)
  1. RITUXAN [Suspect]
     Active Substance: RITUXIMAB
     Route: 042
     Dates: start: 2007
  2. RITUXAN [Suspect]
     Active Substance: RITUXIMAB
     Route: 042
     Dates: start: 2009
  3. RITUXAN [Suspect]
     Active Substance: RITUXIMAB
     Route: 042
     Dates: start: 2011
  4. RITUXAN [Suspect]
     Active Substance: RITUXIMAB
     Indication: IMMUNE THROMBOCYTOPENIC PURPURA
     Route: 042
     Dates: start: 2004
  5. RITUXAN [Suspect]
     Active Substance: RITUXIMAB
     Route: 042
     Dates: start: 2005
  6. RITUXAN [Suspect]
     Active Substance: RITUXIMAB
     Dosage: LAST DOSE 02/SEP/2014, MOST RECENT DOSE 04/AUG/2015
     Route: 042
     Dates: start: 20110922
  7. VITAMIN C [Concomitant]
     Active Substance: ASCORBIC ACID
  8. MICARDIS [Concomitant]
     Active Substance: TELMISARTAN
     Route: 065
     Dates: start: 2010
  9. ELTROMBOPAG [Concomitant]
     Active Substance: ELTROMBOPAG
  10. PREDNISONE. [Concomitant]
     Active Substance: PREDNISONE
     Dosage: BECAUSE OF BLEEDING - CURRENTLY TAPERING OFF (JUNE 26)
     Route: 065

REACTIONS (10)
  - Ankle fracture [Unknown]
  - Contusion [Not Recovered/Not Resolved]
  - Hypertension [Unknown]
  - Thrombosis [Unknown]
  - Systemic viral infection [Unknown]
  - Immune thrombocytopenic purpura [Unknown]
  - Off label use [Unknown]
  - Fall [Unknown]
  - Portal vein thrombosis [Recovered/Resolved]
  - Intentional product use issue [Unknown]

NARRATIVE: CASE EVENT DATE: 2010
